FAERS Safety Report 6038200-X (Version None)
Quarter: 2009Q1

REPORT INFORMATION
  Report Type: 
  Country: None (occurrence: None)
  Receive Date: 20090115
  Receipt Date: 20090109
  Transmission Date: 20090719
  Serious: Yes (Other)
  Sender: FDA-Public Use
  Company Number: BR-ASTRAZENECA-2009UW00964

PATIENT
  Age: 59 Year
  Sex: Female
  Weight: 70 kg

DRUGS (3)
  1. ROSUVASTATIN CALCIUM [Suspect]
     Route: 048
     Dates: start: 20081221, end: 20081231
  2. ATENOLOL [Concomitant]
     Dosage: MANIPULATED DRUG
  3. INDAPAMIDE [Concomitant]
     Dosage: MANIPULATED DRUG

REACTIONS (3)
  - OEDEMA PERIPHERAL [None]
  - PRURITUS [None]
  - RASH [None]
